FAERS Safety Report 4263533-7 (Version None)
Quarter: 2004Q1

REPORT INFORMATION
  Report Type: 
  Country: None (occurrence: None)
  Receive Date: 20040105
  Receipt Date: 20031204
  Transmission Date: 20041129
  Serious: Yes (Hospitalization)
  Sender: FDA-Public Use
  Company Number: PHBS2003JP13677

PATIENT
  Age: 55 Year
  Sex: Male
  Weight: 62 kg

DRUGS (7)
  1. LOCHOL [Suspect]
     Indication: HYPERCHOLESTEROLAEMIA
     Dosage: 20 MG/DAY
     Route: 048
     Dates: start: 20030922, end: 20031110
  2. WARFARIN SODIUM [Suspect]
     Indication: THROMBOSIS PROPHYLAXIS
     Dosage: 3 MG/DAY
     Route: 048
     Dates: start: 20001030, end: 20031110
  3. ENALAPRIL MALEATE [Suspect]
     Indication: CARDIAC DISORDER
     Dosage: 2.5 MG/DAY
     Route: 048
     Dates: start: 20001030, end: 20031110
  4. ALOSENN [Suspect]
     Indication: CONSTIPATION
     Dosage: 0.5 G/DAY
     Route: 048
     Dates: start: 20001030, end: 20031110
  5. NITOROL [Suspect]
     Indication: ANGINA PECTORIS
     Dosage: 40 MG/DAY
     Route: 048
     Dates: start: 20001030, end: 20031110
  6. SELBEX [Concomitant]
     Indication: GASTRIC DISORDER
     Dosage: 100 MG/DAY
     Route: 048
     Dates: start: 20001030, end: 20031110
  7. LOCHOL [Suspect]
     Dosage: 20 MG/DAY
     Route: 048
     Dates: start: 20030210, end: 20030921

REACTIONS (4)
  - BILIARY NEOPLASM [None]
  - CHOLECYSTITIS [None]
  - CONSTIPATION [None]
  - HEPATOTOXICITY [None]
